FAERS Safety Report 7474985-3 (Version None)
Quarter: 2011Q2

REPORT INFORMATION
  Report Type: 
  Country: None (occurrence: None)
  Receive Date: 20110512
  Receipt Date: 20110427
  Transmission Date: 20111010
  Serious: Yes (Other)
  Sender: FDA-Public Use
  Company Number: US-BAYER-201028339NA

PATIENT
  Age: 39 Year
  Sex: Female

DRUGS (3)
  1. BETASERON [Suspect]
     Indication: MULTIPLE SCLEROSIS
     Dosage: UNK
     Route: 058
     Dates: start: 20040920, end: 20050916
  2. BETASERON [Suspect]
     Dosage: 8 MIU, QOD
     Route: 058
  3. BETASERON [Suspect]
     Dosage: 8 MIU, QOD
     Route: 058
     Dates: start: 20050920

REACTIONS (9)
  - MULTIPLE SCLEROSIS [None]
  - MOBILITY DECREASED [None]
  - FEELING OF BODY TEMPERATURE CHANGE [None]
  - MUSCULAR WEAKNESS [None]
  - ASTHENIA [None]
  - LIMB DISCOMFORT [None]
  - CHILLS [None]
  - BURNING SENSATION [None]
  - HEADACHE [None]
